FAERS Safety Report 9016124 (Version 2)
Quarter: 2013Q1

REPORT INFORMATION
  Report Type: Report from Study
  Country: US (occurrence: US)
  Receive Date: 20130116
  Receipt Date: 20130222
  Transmission Date: 20140127
  Serious: Yes (Hospitalization, Other)
  Sender: FDA-Public Use
  Company Number: US-ABBOTT-13P-163-1033762-00

PATIENT
  Sex: Female
  Weight: 62.56 kg

DRUGS (6)
  1. HUMIRA [Suspect]
     Indication: RHEUMATOID ARTHRITIS
     Dates: start: 2001
  2. HUMIRA [Suspect]
     Dates: end: 201202
  3. HUMIRA [Suspect]
     Dosage: TWO INJECTIONS
     Dates: start: 201211, end: 201211
  4. HUMIRA [Suspect]
     Indication: RHEUMATOID ARTHRITIS
  5. VITAMINS [Concomitant]
     Indication: PRODUCT USED FOR UNKNOWN INDICATION
     Dosage: DAILY
  6. FISH OIL [Concomitant]
     Indication: PRODUCT USED FOR UNKNOWN INDICATION

REACTIONS (7)
  - Sinus congestion [Unknown]
  - Rheumatoid arthritis [Recovered/Resolved]
  - Incontinence [Unknown]
  - Injection site pain [Unknown]
  - Rheumatoid arthritis [Not Recovered/Not Resolved]
  - Rheumatoid arthritis [Not Recovered/Not Resolved]
  - Injection site pain [Recovered/Resolved]
